FAERS Safety Report 5347024-8 (Version None)
Quarter: 2007Q2

REPORT INFORMATION
  Report Type: 
  Country: None (occurrence: None)
  Receive Date: 20070604
  Receipt Date: 20070529
  Transmission Date: 20071010
  Serious: Yes (Life-Threatening, Hospitalization)
  Sender: FDA-Public Use
  Company Number: 2007-157142-NL

PATIENT
  Age: 34 Year
  Sex: Male

DRUGS (2)
  1. MIRTAZAPINE [Suspect]
     Indication: DEPRESSION
     Dosage: 30 MG ORAL
     Route: 048
     Dates: start: 20070302, end: 20070406
  2. ANACAPS [Concomitant]

REACTIONS (13)
  - ALTERED STATE OF CONSCIOUSNESS [None]
  - ANTIPHOSPHOLIPID ANTIBODIES POSITIVE [None]
  - CARDIAC DISORDER [None]
  - COMA [None]
  - CONFUSIONAL STATE [None]
  - DIALYSIS [None]
  - DISSOCIATION [None]
  - DISTURBANCE IN ATTENTION [None]
  - FACTOR V DEFICIENCY [None]
  - MEMORY IMPAIRMENT [None]
  - PULMONARY EMBOLISM [None]
  - RHABDOMYOLYSIS [None]
  - RIGHT VENTRICULAR FAILURE [None]
